FAERS Safety Report 6245130-7 (Version None)
Quarter: 2009Q2

REPORT INFORMATION
  Report Type: 
  Country: None (occurrence: None)
  Receive Date: 20090619
  Receipt Date: 20090331
  Transmission Date: 20091009
  Serious: No
  Sender: FDA-Public Use
  Company Number: ALL1-2009-00851

PATIENT
  Age: 54 Year
  Sex: Female
  Weight: 95.2 kg

DRUGS (5)
  1. VYVANSE [Suspect]
     Indication: SYNCOPE
     Dosage: 1X/DAY:QD, ORAL ; 40 MG, 1X/DAY:QD, ORAL
     Route: 048
     Dates: start: 20081101
  2. VYVANSE [Suspect]
     Indication: SYNCOPE
     Dosage: 1X/DAY:QD, ORAL ; 40 MG, 1X/DAY:QD, ORAL
     Route: 048
     Dates: start: 20090201
  3. CYMBALTA [Concomitant]
  4. WELLBUTRIN [Concomitant]
  5. KLONOPIN [Concomitant]

REACTIONS (5)
  - FATIGUE [None]
  - MALAISE [None]
  - NAUSEA [None]
  - OFF LABEL USE [None]
  - PARAESTHESIA [None]
